FAERS Safety Report 9308022 (Version 1)
Quarter: 2013Q2

REPORT INFORMATION
  Report Type: Spontaneous
  Country: US (occurrence: US)
  Receive Date: 20130524
  Receipt Date: 20130524
  Transmission Date: 20140414
  Serious: No
  Sender: FDA-Public Use
  Company Number: US-GLAXOSMITHKLINE-A0979328A

PATIENT
  Age: 10 Year
  Sex: Female

DRUGS (2)
  1. BACTROBAN [Suspect]
     Indication: STAPHYLOCOCCAL INFECTION
     Dosage: 1APP TWICE PER DAY
     Route: 045
     Dates: start: 20120524, end: 20120528
  2. NO CONCURRENT MEDICATION [Concomitant]

REACTIONS (5)
  - Application site pain [Recovering/Resolving]
  - Oropharyngeal pain [Unknown]
  - Cough [Unknown]
  - Nasal ulcer [Unknown]
  - Drug administration error [Unknown]
